FAERS Safety Report 6160043-7 (Version None)
Quarter: 2009Q2

REPORT INFORMATION
  Report Type: 
  Country: None (occurrence: None)
  Receive Date: 20090420
  Receipt Date: 20090410
  Transmission Date: 20091009
  Serious: Yes (Hospitalization)
  Sender: FDA-Public Use
  Company Number: IT-BAYER-200918446GPV

PATIENT
  Age: 66 Year
  Sex: Female

DRUGS (7)
  1. AVELOX [Suspect]
     Indication: PULMONARY TUBERCULOSIS
     Dosage: UNIT DOSE: 400 MG
     Route: 048
     Dates: start: 20090223, end: 20090227
  2. ETAPIAM [Concomitant]
     Indication: PULMONARY TUBERCULOSIS
     Route: 048
     Dates: start: 20090223, end: 20090317
  3. BENADON [Concomitant]
     Indication: PULMONARY TUBERCULOSIS
     Route: 048
     Dates: start: 20090223, end: 20090317
  4. URSOBIL [Concomitant]
     Indication: PULMONARY TUBERCULOSIS
     Route: 048
     Dates: start: 20090220, end: 20090228
  5. QUINAZIL [Concomitant]
     Indication: ASTHMA
     Route: 048
     Dates: start: 20090220, end: 20090311
  6. FOSTER (BECLOMETHASONE + FENOTEROL) [Concomitant]
     Indication: ASTHMA
     Route: 055
     Dates: start: 20090220, end: 20090317
  7. ANTRA [Concomitant]
     Indication: ASTHMA
     Route: 048
     Dates: start: 20090220, end: 20090317

REACTIONS (3)
  - PRURITUS [None]
  - PYREXIA [None]
  - VASCULITIS [None]
